FAERS Safety Report 7903683-4 (Version None)
Quarter: 2011Q4

REPORT INFORMATION
  Report Type: 
  Country: None (occurrence: None)
  Receive Date: 20111109
  Receipt Date: 20111102
  Transmission Date: 20120403
  Serious: Yes (Hospitalization)
  Sender: FDA-Public Use
  Company Number: FR-BAYER-2011-005422

PATIENT
  Age: 69 Year
  Sex: Male
  Weight: 107 kg

DRUGS (27)
  1. TANAKAN [Concomitant]
     Dosage: 120 MG, QD
     Dates: end: 20100308
  2. PRAVASTATIN [Concomitant]
     Dosage: 20 MG, QD
  3. SINGULAIR [Concomitant]
     Dosage: UNK
     Route: 048
     Dates: start: 20110107
  4. MICROLAX [GLYCEROL,SODIUM CITRATE ACID,SODIUM LAURYL SULFATE,SORBI [Concomitant]
     Dosage: UNK
     Dates: start: 20100701
  5. SPASFON [Concomitant]
     Dosage: 6 CP
     Dates: start: 20100204
  6. ATORVASTATIN CALCIUM [Concomitant]
     Dosage: DAILY DOSE 10 MG
     Route: 048
     Dates: start: 20110107
  7. ZOLPIDEM TARTRATE [Concomitant]
     Dosage: DAILY DOSE 10 MG
     Route: 048
  8. MORPHINE SULFATE [Concomitant]
     Indication: PAIN
     Dosage: 30 MG, QID
     Route: 048
     Dates: start: 20110107
  9. TARKA [Concomitant]
     Dosage: DAILY DOSE 180 MG
     Route: 048
     Dates: start: 20100308
  10. NAXAVAR [Suspect]
     Dosage: 400 MG, QD
     Route: 048
     Dates: start: 20101104, end: 20101215
  11. SINGULAIR [Concomitant]
     Dosage: 10 MG, QD
     Dates: end: 20100204
  12. NAXAVAR [Suspect]
     Indication: HEPATIC NEOPLASM MALIGNANT
     Dosage: 800 MG, QD
     Route: 048
     Dates: start: 20100120, end: 20100307
  13. ALDACTONE [Concomitant]
     Dosage: 75 MG, QD
  14. ASPIRIN [Concomitant]
     Dosage: 75 MG, QD
  15. TRANSIPEG [MACROGOL 3350,KCL,NA BICARB,NACL,NA+ SULF ANHYDR] [Concomitant]
     Dosage: 3 CP
     Dates: start: 20100308
  16. TRIMEBUTINE [Concomitant]
     Dosage: 600 MG, QD
     Dates: start: 20100308
  17. LANSOPRAZOLE [Concomitant]
     Dosage: 15 MG, QD
     Dates: end: 20100307
  18. NAXAVAR [Suspect]
     Dosage: 200 MG, QD
     Route: 048
     Dates: start: 20101101, end: 20101103
  19. STABLON [Concomitant]
     Dosage: 3 CP
     Route: 048
     Dates: start: 20100204
  20. NAXAVAR [Suspect]
     Dosage: 400 MG, QD
     Route: 048
     Dates: start: 20100308, end: 20101023
  21. NAXAVAR [Suspect]
     Dosage: 400 MG, QD
     Route: 048
     Dates: start: 20101225
  22. POTASSIUM CHLORIDE [Concomitant]
     Dosage: 2000 MG, QD
     Dates: end: 20100308
  23. MORPHINE SULFATE [Concomitant]
     Dosage: DAILY DOSE 200 MG
     Dates: start: 20101104
  24. POLYETHYLENE GLYCOL [Concomitant]
     Indication: CONSTIPATION
     Dosage: UNK
     Route: 048
     Dates: start: 20110107
  25. NEXIUM [Concomitant]
     Dosage: DAILY DOSE 40 MG
     Route: 048
     Dates: start: 20110107
  26. ZOLPIDEM [Concomitant]
     Dosage: 10 MG, QD
  27. BIODALGIC [Concomitant]
     Dosage: 50 MG, QD
     Dates: end: 20100204

REACTIONS (4)
  - GENERAL PHYSICAL HEALTH DETERIORATION [None]
  - IRON DEFICIENCY ANAEMIA [None]
  - FUNCTIONAL GASTROINTESTINAL DISORDER [None]
  - VARICES OESOPHAGEAL [None]
